FAERS Safety Report 9066932 (Version 1)
Quarter: 2013Q1

REPORT INFORMATION
  Report Type: Spontaneous
  Country: US (occurrence: US)
  Receive Date: 20130129
  Receipt Date: 20130129
  Transmission Date: 20140127
  Serious: Yes (Other)
  Sender: FDA-Public Use
  Company Number: US-RB-049053-13

PATIENT
  Age: 28 Year
  Sex: Female

DRUGS (1)
  1. GENERIC BUPRENORPHINE [Suspect]
     Indication: PAIN
     Dosage: DOSING DETAILS UNKNOWN
     Route: 060

REACTIONS (5)
  - Off label use [Not Recovered/Not Resolved]
  - Road traffic accident [Recovered/Resolved]
  - Splenic rupture [Unknown]
  - Gallbladder injury [Unknown]
  - Pain [Not Recovered/Not Resolved]
